FAERS Safety Report 25460158 (Version 2)
Quarter: 2025Q3

REPORT INFORMATION
  Report Type: Report from Study
  Country: EU (occurrence: EU)
  Receive Date: 20250620
  Receipt Date: 20250701
  Transmission Date: 20251020
  Serious: No
  Sender: DAIICHI
  Company Number: EU-DSJP-DS-2025-148495-FR

PATIENT
  Sex: Female

DRUGS (2)
  1. ENHERTU [Suspect]
     Active Substance: FAM-TRASTUZUMAB DERUXTECAN-NXKI
     Indication: HER2 low breast cancer
     Dosage: UNK UNK, ONCE EVERY 3 WK
     Route: 042
  2. ENHERTU [Suspect]
     Active Substance: FAM-TRASTUZUMAB DERUXTECAN-NXKI
     Indication: Breast cancer metastatic
     Dosage: 2.7 MG/KG, ONCE EVERY 3 WK
     Route: 042

REACTIONS (2)
  - Drug intolerance [Unknown]
  - Incorrect dose administered [Recovered/Resolved]
